FAERS Safety Report 7310613-5 (Version None)
Quarter: 2011Q1

REPORT INFORMATION
  Report Type: 
  Country: None (occurrence: None)
  Receive Date: 20110224
  Receipt Date: 20100429
  Transmission Date: 20110831
  Serious: No
  Sender: FDA-Public Use
  Company Number: US-BRISTOL-MYERS SQUIBB COMPANY-15072689

PATIENT
  Sex: Male

DRUGS (3)
  1. DIABETA [Suspect]
     Route: 048
  2. JANUVIA [Suspect]
     Route: 048
  3. METFORMIN HCL [Suspect]
     Dosage: REDUCED TO 500MG BID. THEN STOPPED FOR 3 DAYS.

REACTIONS (4)
  - BLOOD GLUCOSE INCREASED [None]
  - BLOOD GLUCOSE DECREASED [None]
  - DIARRHOEA [None]
  - GLYCOSYLATED HAEMOGLOBIN INCREASED [None]
